FAERS Safety Report 11101819 (Version 1)
Quarter: 2015Q2

REPORT INFORMATION
  Report Type: Report from Study
  Country: US (occurrence: US)
  Receive Date: 20150509
  Receipt Date: 20150509
  Transmission Date: 20150821
  Serious: Yes (Hospitalization, Other)
  Sender: FDA-Public Use
  Company Number: US-ASTRAZENECA-2015SE29028

PATIENT
  Age: 55 Year
  Sex: Female
  Weight: 83 kg

DRUGS (5)
  1. SIMVASTATIN. [Concomitant]
     Active Substance: SIMVASTATIN
  2. LISINOPRIL. [Suspect]
     Active Substance: LISINOPRIL
     Route: 048
  3. BYDUREON [Suspect]
     Active Substance: EXENATIDE
     Indication: TYPE 2 DIABETES MELLITUS
     Route: 058
     Dates: start: 20150310, end: 20150323
  4. OMPERAZOLE [Suspect]
     Active Substance: OMEPRAZOLE
     Route: 048
  5. ACE INHIBITORS [Concomitant]
     Active Substance: UNSPECIFIED INGREDIENT

REACTIONS (17)
  - Abdominal pain [Unknown]
  - Blood potassium increased [Unknown]
  - Abdominal discomfort [Unknown]
  - Protein urine [Unknown]
  - Back pain [Unknown]
  - Drug hypersensitivity [Unknown]
  - Decreased appetite [Not Recovered/Not Resolved]
  - Abdominal distension [Recovered/Resolved]
  - Blood glucose increased [Unknown]
  - Blood urine present [Unknown]
  - Abdominal pain upper [Recovered/Resolved]
  - Malaise [Unknown]
  - Off label use [Unknown]
  - Pancreatitis [Recovered/Resolved]
  - Lipase increased [Unknown]
  - Glucose urine [Unknown]
  - Injection site pruritus [Unknown]

NARRATIVE: CASE EVENT DATE: 201503
